FAERS Safety Report 7521902-3 (Version None)
Quarter: 2011Q2

REPORT INFORMATION
  Report Type: 
  Country: None (occurrence: None)
  Receive Date: 20110603
  Receipt Date: 20110523
  Transmission Date: 20111010
  Serious: Yes (Hospitalization)
  Sender: FDA-Public Use
  Company Number: CA-RANBAXY-2011US-44733

PATIENT
  Age: 16 Year
  Sex: Female

DRUGS (8)
  1. RISPERIDONE [Suspect]
     Indication: SOCIAL PHOBIA
     Dosage: 2.25 MG
     Route: 065
  2. CITALOPRAM HYDROBROMIDE [Concomitant]
     Indication: PSYCHOTIC DISORDER
  3. RISPERIDONE [Suspect]
     Indication: PSYCHOTIC DISORDER
     Dosage: 1 MG
     Route: 065
  4. OLANZAPINE [Concomitant]
     Indication: PRODUCT USED FOR UNKNOWN INDICATION
     Dosage: UNK
     Route: 065
  5. CLONAZEPAM [Concomitant]
     Indication: PRODUCT USED FOR UNKNOWN INDICATION
     Dosage: UNK
     Route: 065
  6. RISPERIDONE [Suspect]
     Indication: OBSESSIVE-COMPULSIVE DISORDER
     Dosage: 4.5 MG
     Route: 065
  7. CITALOPRAM HYDROBROMIDE [Concomitant]
     Indication: SOCIAL PHOBIA
     Dosage: UNK
     Route: 065
  8. CITALOPRAM HYDROBROMIDE [Concomitant]
     Indication: OBSESSIVE-COMPULSIVE DISORDER

REACTIONS (4)
  - HALLUCINATION, AUDITORY [None]
  - DYSTONIA [None]
  - SUICIDAL IDEATION [None]
  - ANXIETY [None]
